FAERS Safety Report 9299432 (Version 1)
Quarter: 2013Q2

REPORT INFORMATION
  Report Type: Spontaneous
  Country: US (occurrence: US)
  Receive Date: 20130521
  Receipt Date: 20130521
  Transmission Date: 20140414
  Serious: No
  Sender: FDA-Public Use
  Company Number: US-009507513-1305USA010388

PATIENT
  Age: 23 Year
  Sex: Female
  Weight: 72.56 kg

DRUGS (2)
  1. IMPLANON [Suspect]
     Indication: CONTRACEPTION
     Dosage: 1 DF, STRENGTH:68
     Route: 059
     Dates: start: 201302
  2. VITAMINS (UNSPECIFIED) [Concomitant]

REACTIONS (1)
  - Sinusitis [Not Recovered/Not Resolved]
